FAERS Safety Report 6255578-2 (Version None)
Quarter: 2009Q3

REPORT INFORMATION
  Report Type: 
  Country: None (occurrence: None)
  Receive Date: 20090702
  Receipt Date: 20090619
  Transmission Date: 20100115
  Serious: Yes (Other)
  Sender: FDA-Public Use
  Company Number: MX-GENENTECH-285761

PATIENT
  Age: 35 Year
  Sex: Male
  Weight: 59 kg

DRUGS (8)
  1. XOLAIR [Suspect]
     Indication: ASTHMA
     Dosage: 375 MG, Q15D
     Dates: start: 20090113, end: 20090601
  2. XOLAIR [Suspect]
     Indication: DERMATITIS ATOPIC
     Dosage: 300 MG, Q2W
     Dates: start: 20090610
  3. XOLAIR [Suspect]
     Indication: BLOOD IMMUNOGLOBULIN E INCREASED
  4. HYDROXYZINE [Concomitant]
     Indication: DRUG USE FOR UNKNOWN INDICATION
  5. GLICOFOSFOPEPTICAL [Concomitant]
     Indication: DRUG USE FOR UNKNOWN INDICATION
  6. SERTRALINE [Concomitant]
     Indication: DRUG USE FOR UNKNOWN INDICATION
  7. BROMAZEPAM [Concomitant]
     Indication: DRUG USE FOR UNKNOWN INDICATION
  8. REMERON [Concomitant]
     Indication: DRUG USE FOR UNKNOWN INDICATION

REACTIONS (4)
  - ASTHENIA [None]
  - DISCOMFORT [None]
  - DRY SKIN [None]
  - PARAPROTEINAEMIA [None]
